FAERS Safety Report 17511242 (Version 1)
Quarter: 2020Q1

REPORT INFORMATION
  Report Type: Spontaneous
  Country: US (occurrence: US)
  Receive Date: 20200306
  Receipt Date: 20200306
  Transmission Date: 20200409
  Serious: Yes (Death)
  Sender: FDA-Public Use
  Company Number: None

PATIENT
  Age: 47 Year
  Sex: Male
  Weight: 79.38 kg

DRUGS (14)
  1. CENTRUM [Concomitant]
     Active Substance: VITAMINS
  2. LEVOTHYROXINE 25MCG [Concomitant]
     Active Substance: LEVOTHYROXINE
  3. ONDANSTERON 8MG [Concomitant]
  4. VITAMIN B COMPLEX [Concomitant]
     Active Substance: CYANOCOBALAMIN\DEXPANTHENOL\NIACINAMIDE\PYRIDOXINE HYDROCHLORIDE\RIBOFLAVIN 5^-PHOSPHATE SODIUM\THIAMINE HYDROCHLORIDE\VITAMIN B COMPLEX
  5. OXYCODONE 10MG [Concomitant]
     Active Substance: OXYCODONE
  6. FLUDROCORTISONE 0.1MG [Concomitant]
  7. LORAZEPAM 0.5MG [Concomitant]
     Active Substance: LORAZEPAM
  8. NIACIN ER 500MG [Concomitant]
  9. OLANZAPINE 2.5MG [Concomitant]
     Active Substance: OLANZAPINE
  10. TAZVERIK [Suspect]
     Active Substance: TAZEMETOSTAT HYDROBROMIDE
     Route: 048
     Dates: start: 20200205, end: 20200306
  11. ADVIL 200MG [Concomitant]
  12. MAG OXIDE 400MG [Concomitant]
  13. APAP 500MG [Concomitant]
  14. ZOLPIDEM [Concomitant]
     Active Substance: ZOLPIDEM TARTRATE

REACTIONS (1)
  - Death [None]

NARRATIVE: CASE EVENT DATE: 20200306
